FAERS Safety Report 5738160-2 (Version None)
Quarter: 2008Q2

REPORT INFORMATION
  Report Type: 
  Country: None (occurrence: None)
  Receive Date: 20080514
  Receipt Date: 20080507
  Transmission Date: 20081010
  Serious: Yes (Hospitalization)
  Sender: FDA-Public Use
  Company Number: ES-PFIZER INC-2007008152

PATIENT
  Sex: Male
  Weight: 80 kg

DRUGS (2)
  1. SU-011,248 [Suspect]
     Indication: METASTATIC RENAL CELL CARCINOMA
     Route: 048
     Dates: start: 20060523, end: 20070116
  2. CARDURA [Concomitant]
     Route: 048
     Dates: start: 20050719

REACTIONS (2)
  - DIARRHOEA [None]
  - RENAL FAILURE [None]
